FAERS Safety Report 6671569-1 (Version None)
Quarter: 2010Q2

REPORT INFORMATION
  Report Type: 
  Country: None (occurrence: None)
  Receive Date: 20100407
  Receipt Date: 20100330
  Transmission Date: 20101027
  Serious: Yes (Other)
  Sender: FDA-Public Use
  Company Number: US-AMGEN-QUU395990

PATIENT
  Sex: Female
  Weight: 79.5 kg

DRUGS (18)
  1. NPLATE [Suspect]
     Indication: IDIOPATHIC THROMBOCYTOPENIC PURPURA
     Dates: start: 20081011
  2. SYNTHROID [Concomitant]
  3. PREDNISONE TAB [Concomitant]
  4. AMBIEN [Concomitant]
  5. BENADRYL [Concomitant]
  6. CLOBETASOL PROPIONATE [Concomitant]
  7. VITAMIN C [Concomitant]
  8. VITAMIN D [Concomitant]
  9. MAGNESIUM [Concomitant]
  10. ZINC [Concomitant]
  11. L-LYSINE [Concomitant]
  12. CHLOROPHYLL [Concomitant]
  13. METAMUCIL-2 [Concomitant]
  14. ALOE VERA [Concomitant]
  15. ELIDEL [Concomitant]
  16. SKIN OINTMENT NOS [Concomitant]
  17. UNSPECIFIED ANTIBIOTIC [Concomitant]
  18. CORTICOSTEROIDS [Concomitant]

REACTIONS (24)
  - ABDOMINAL PAIN UPPER [None]
  - ALOPECIA [None]
  - ARTHRITIS [None]
  - ASTHENIA [None]
  - CHILLS [None]
  - CROHN'S DISEASE [None]
  - DIARRHOEA [None]
  - DYSPEPSIA [None]
  - FEELING HOT [None]
  - GASTROINTESTINAL PAIN [None]
  - HAIR GROWTH ABNORMAL [None]
  - HAIR TEXTURE ABNORMAL [None]
  - HYPERHIDROSIS [None]
  - INCREASED TENDENCY TO BRUISE [None]
  - INFLUENZA LIKE ILLNESS [None]
  - LACRIMATION INCREASED [None]
  - MALAISE [None]
  - MUSCLE SPASMS [None]
  - NAUSEA [None]
  - NEUROPATHY PERIPHERAL [None]
  - PAIN IN EXTREMITY [None]
  - PLATELET COUNT DECREASED [None]
  - ROSACEA [None]
  - STRESS [None]
